FAERS Safety Report 8617647-9 (Version None)
Quarter: 2012Q3

REPORT INFORMATION
  Report Type: 
  Country: None (occurrence: None)
  Receive Date: 20120824
  Receipt Date: 20120124
  Transmission Date: 20120928
  Serious: No
  Sender: FDA-Public Use
  Company Number: US-ASTRAZENECA-2011SE76252

PATIENT
  Age: 82 Year
  Sex: Female

DRUGS (1)
  1. SYMBICORT [Suspect]
     Dosage: 80 MCG TWO TIMES A DAY
     Route: 055
     Dates: start: 20090101

REACTIONS (2)
  - ADVERSE EVENT [None]
  - DRUG DOSE OMISSION [None]
